FAERS Safety Report 8131467-3 (Version None)
Quarter: 2012Q1

REPORT INFORMATION
  Report Type: 
  Country: None (occurrence: None)
  Receive Date: 20120213
  Receipt Date: 20120202
  Transmission Date: 20120608
  Serious: Yes (Other)
  Sender: FDA-Public Use
  Company Number: BR-SANOFI-AVENTIS-2011SA057430

PATIENT
  Sex: Male
  Weight: 65 kg

DRUGS (3)
  1. INSULIN [Concomitant]
     Indication: TYPE 2 DIABETES MELLITUS
  2. LANTUS [Suspect]
     Indication: TYPE 2 DIABETES MELLITUS
     Dosage: CARTRIDGE
     Route: 065
     Dates: start: 20080101
  3. AUTOPEN 24 [Suspect]
     Indication: DEVICE THERAPY

REACTIONS (6)
  - IMMUNODEFICIENCY [None]
  - CORONARY ARTERY DISEASE [None]
  - INTERVERTEBRAL DISCITIS [None]
  - INTERVERTEBRAL DISC PROTRUSION [None]
  - BONE PAIN [None]
  - OSTEOMYELITIS [None]
